FAERS Safety Report 25980381 (Version 3)
Quarter: 2025Q4

REPORT INFORMATION
  Report Type: Spontaneous
  Country: JP (occurrence: JP)
  Receive Date: 20251030
  Receipt Date: 20251105
  Transmission Date: 20260117
  Serious: Yes (Hospitalization, Other)
  Sender: PFIZER
  Company Number: JP-PFIZER INC-202500212725

PATIENT
  Age: 49 Year
  Sex: Female

DRUGS (2)
  1. CORTRIL [Suspect]
     Active Substance: HYDROCORTISONE
     Indication: Endocrine disorder
     Dosage: 30 MG, DAILY
     Route: 048
  2. CORTRIL [Suspect]
     Active Substance: HYDROCORTISONE
     Indication: Addison^s disease
     Dosage: 25 MG, DAILY
     Route: 048

REACTIONS (3)
  - Pyrexia [Unknown]
  - Steroid withdrawal syndrome [Unknown]
  - Feeding disorder [Unknown]
